FAERS Safety Report 6904073-3 (Version None)
Quarter: 2010Q3

REPORT INFORMATION
  Report Type: 
  Country: None (occurrence: None)
  Receive Date: 20100804
  Receipt Date: 20090309
  Transmission Date: 20110219
  Serious: No
  Sender: FDA-Public Use
  Company Number: US-PFIZER INC-2009180780

PATIENT
  Sex: Male
  Weight: 91.2 kg

DRUGS (3)
  1. LYRICA [Suspect]
     Indication: BIPOLAR DISORDER
     Dosage: 50 MG, 2X/DAY
     Dates: start: 20090309
  2. LYRICA [Suspect]
     Indication: NEURALGIA
  3. CYMBALTA [Concomitant]
     Dosage: UNK

REACTIONS (2)
  - DYSPNOEA [None]
  - VISION BLURRED [None]
